FAERS Safety Report 8019527-9 (Version None)
Quarter: 2012Q1

REPORT INFORMATION
  Report Type: 
  Country: None (occurrence: None)
  Receive Date: 20120103
  Receipt Date: 20111230
  Transmission Date: 20120608
  Serious: Yes (Other)
  Sender: FDA-Public Use
  Company Number: PHFR2011GB006727

PATIENT
  Sex: Female
  Weight: 87.2 kg

DRUGS (13)
  1. CLOZARIL [Suspect]
     Dosage: 50 MG, BID
     Route: 048
  2. CLOZARIL [Suspect]
     Dosage: DOSE REDUCED
     Route: 048
     Dates: end: 20111121
  3. METOPROLOL [Concomitant]
     Indication: BLOOD PRESSURE
     Dosage: 50 MG, QD
     Route: 048
  4. ASPIRIN [Concomitant]
     Indication: ATRIAL FIBRILLATION
     Dosage: 75 G, QD
     Route: 048
  5. ALENDRONIC ACID [Concomitant]
     Dosage: 70 G, QW
     Route: 048
  6. CLOPENTHIXOL [Concomitant]
     Indication: DELUSION
     Dosage: 1 MG, BID
     Route: 048
  7. LAMOTRIGINE [Concomitant]
     Indication: DEPRESSED MOOD
     Dosage: 150 G, QD
  8. ADCAL-D3 [Concomitant]
     Indication: DEPRESSED MOOD
     Dosage: UNK
     Route: 048
  9. OMEPRAZOL ^ACYFABRIK^ [Concomitant]
     Indication: GASTROOESOPHAGEAL REFLUX DISEASE
     Dosage: 20 MG, QD
     Route: 048
  10. DIGOXIN [Concomitant]
     Indication: ATRIAL FIBRILLATION
     Dosage: 26 UG, QD
     Route: 048
  11. LOPERAMIDE [Concomitant]
     Indication: DEPRESSION
     Dosage: 140 G, QD
     Route: 048
  12. CLOZARIL [Suspect]
     Indication: SCHIZOPHRENIA
     Dosage: 12.5 MG, QD
     Route: 048
     Dates: start: 20111101
  13. LOPERAMIDE [Concomitant]
     Dosage: 70 G, QD
     Route: 048

REACTIONS (4)
  - FALL [None]
  - SALIVARY HYPERSECRETION [None]
  - HEMIPARESIS [None]
  - SOMNOLENCE [None]
